FAERS Safety Report 23486150 (Version 1)
Quarter: 2024Q1

REPORT INFORMATION
  Report Type: Spontaneous
  Country: IT (occurrence: IT)
  Receive Date: 20240206
  Receipt Date: 20240206
  Transmission Date: 20240409
  Serious: Yes (Other)
  Sender: FDA-Public Use
  Company Number: None

PATIENT
  Age: 79 Year
  Sex: Female
  Weight: 72 kg

DRUGS (2)
  1. TRASTUZUMAB [Suspect]
     Active Substance: TRASTUZUMAB
     Indication: Breast cancer
     Dosage: 462 MILLIGRAM
     Route: 040
     Dates: start: 20230607
  2. PERTUZUMAB [Suspect]
     Active Substance: PERTUZUMAB
     Indication: Breast cancer
     Dosage: 420 MILLIGRAM
     Route: 040
     Dates: start: 20230607, end: 20230607

REACTIONS (5)
  - Azotaemia [Recovered/Resolved]
  - Hypoalbuminaemia [Recovered/Resolved]
  - Hypocalcaemia [Recovered/Resolved]
  - Blood alkaline phosphatase increased [Recovered/Resolved]
  - Off label use [Unknown]

NARRATIVE: CASE EVENT DATE: 20230622
